FAERS Safety Report 8496730-5 (Version None)
Quarter: 2012Q3

REPORT INFORMATION
  Report Type: 
  Country: None (occurrence: None)
  Receive Date: 20120709
  Receipt Date: 20120627
  Transmission Date: 20120928
  Serious: Yes (Hospitalization)
  Sender: FDA-Public Use
  Company Number: DE-ASTRAZENECA-2012SE45837

PATIENT
  Age: 10 Week
  Sex: Male
  Weight: 5.5 kg

DRUGS (4)
  1. FUROSEMIDE [Concomitant]
  2. D-FLUORETTE [Concomitant]
  3. SYNAGIS [Suspect]
     Indication: ANTIVIRAL PROPHYLAXIS
     Route: 030
     Dates: start: 20120130, end: 20120130
  4. SYNAGIS [Suspect]
     Route: 030
     Dates: start: 20120224, end: 20120224

REACTIONS (2)
  - BRONCHITIS [None]
  - RESPIRATORY FAILURE [None]
